FAERS Safety Report 15461052 (Version 2)
Quarter: 2018Q4

REPORT INFORMATION
  Report Type: Spontaneous
  Country: US (occurrence: US)
  Receive Date: 20181003
  Receipt Date: 20181008
  Transmission Date: 20190204
  Serious: Yes (Other)
  Sender: FDA-Public Use
  Company Number: US-PFIZER INC-2018395005

PATIENT
  Age: 59 Year
  Sex: Male
  Weight: 129.2 kg

DRUGS (1)
  1. LYRICA [Suspect]
     Active Substance: PREGABALIN
     Indication: NEUROPATHY PERIPHERAL
     Dosage: 150 MG, 2X/DAY
     Route: 048
     Dates: start: 20180121

REACTIONS (3)
  - Amnesia [Unknown]
  - Cerebrovascular accident [Unknown]
  - Loss of consciousness [Unknown]
